FAERS Safety Report 21552758 (Version 2)
Quarter: 2022Q4

REPORT INFORMATION
  Report Type: Spontaneous
  Country: CN (occurrence: CN)
  Receive Date: 20221104
  Receipt Date: 20221104
  Transmission Date: 20230113
  Serious: Yes (Hospitalization, Other)
  Sender: FDA-Public Use
  Company Number: CN-AstraZeneca-2022A357156

PATIENT

DRUGS (2)
  1. GOSERELIN [Suspect]
     Active Substance: GOSERELIN
     Indication: Breast cancer female
     Dosage: 3.6 MILLIGRAM, QD
     Route: 058
     Dates: start: 20220916, end: 20220916
  2. ZOLADEX [Suspect]
     Active Substance: GOSERELIN ACETATE
     Indication: Breast cancer female
     Dosage: UNK
     Route: 065

REACTIONS (8)
  - Chest discomfort [Recovering/Resolving]
  - Irritability [Unknown]
  - Restlessness [Unknown]
  - Altered state of consciousness [Unknown]
  - Rash erythematous [Unknown]
  - Dyspnoea [Unknown]
  - Dizziness [Recovering/Resolving]
  - Blood pressure decreased [Unknown]

NARRATIVE: CASE EVENT DATE: 20220916
